FAERS Safety Report 12236048 (Version 3)
Quarter: 2016Q2

REPORT INFORMATION
  Report Type: Report from Study
  Country: IL (occurrence: IL)
  Receive Date: 20160404
  Receipt Date: 20160607
  Transmission Date: 20160815
  Serious: Yes (Other)
  Sender: FDA-Public Use
  Company Number: PHHY2016IL041107

PATIENT
  Sex: Male
  Weight: 3.8 kg

DRUGS (1)
  1. GILENYA [Suspect]
     Active Substance: FINGOLIMOD HYDROCHLORIDE
     Indication: EXPOSURE VIA FATHER
     Dosage: FETAL DRUG EXPOSURE VIA FATHER: 0.5 MG QD
     Route: 050
     Dates: start: 20130825

REACTIONS (2)
  - Jaundice neonatal [Recovered/Resolved]
  - Exposure via father [Unknown]
